FAERS Safety Report 8992491 (Version 1)
Quarter: 2012Q4

REPORT INFORMATION
  Report Type: 
  Country: US (occurrence: US)
  Receive Date: 20121231
  Receipt Date: 20121231
  Transmission Date: 20130627
  Serious: Yes (Hospitalization)
  Sender: FDA-Public Use
  Company Number: US-AMGEN-USASP2012083713

PATIENT
  Age: 50 Year
  Sex: Male

DRUGS (1)
  1. ENBREL [Suspect]
     Indication: PSORIATIC ARTHROPATHY
     Dosage: 50 mg, qwk
     Dates: start: 20040120

REACTIONS (7)
  - Vomiting [Recovered/Resolved]
  - Dizziness [Recovered/Resolved]
  - Sensation of heaviness [Not Recovered/Not Resolved]
  - Fatigue [Not Recovered/Not Resolved]
  - Tooth disorder [Not Recovered/Not Resolved]
  - Weight increased [Recovered/Resolved]
  - Paraesthesia [Not Recovered/Not Resolved]
